FAERS Safety Report 7122450-5 (Version None)
Quarter: 2010Q4

REPORT INFORMATION
  Report Type: 
  Country: None (occurrence: None)
  Receive Date: 20101124
  Receipt Date: 20101123
  Transmission Date: 20110411
  Serious: Yes (Hospitalization, Other)
  Sender: FDA-Public Use
  Company Number: GB-MERCK-1011GBR00081

PATIENT
  Age: 63 Year
  Sex: Male
  Weight: 76 kg

DRUGS (2)
  1. ZOCOR [Suspect]
     Route: 048
  2. BISOPROLOL FUMARATE [Suspect]
     Route: 048

REACTIONS (4)
  - ANGINA PECTORIS [None]
  - DYSPNOEA [None]
  - DYSPNOEA EXERTIONAL [None]
  - MYOCARDITIS [None]
